FAERS Safety Report 22834693 (Version 3)
Quarter: 2023Q4

REPORT INFORMATION
  Report Type: Spontaneous
  Country: US (occurrence: US)
  Receive Date: 20230817
  Receipt Date: 20231004
  Transmission Date: 20240109
  Serious: No
  Sender: FDA-Public Use
  Company Number: US-AMGEN-USASP2023142924

PATIENT
  Age: 34 Year
  Sex: Male
  Weight: 78.005 kg

DRUGS (1)
  1. NEULASTA [Suspect]
     Active Substance: PEGFILGRASTIM
     Indication: Adenocarcinoma metastatic
     Dosage: UNK
     Route: 065

REACTIONS (3)
  - Device use issue [Unknown]
  - Device occlusion [Unknown]
  - Application site haemorrhage [Unknown]

NARRATIVE: CASE EVENT DATE: 20230809
